FAERS Safety Report 17935738 (Version 1)
Quarter: 2020Q2

REPORT INFORMATION
  Report Type: Spontaneous
  Country: US (occurrence: US)
  Receive Date: 20200624
  Receipt Date: 20200624
  Transmission Date: 20200714
  Serious: Yes (Disabling)
  Sender: FDA-Public Use
  Company Number: None

PATIENT
  Age: 56 Year
  Sex: Female
  Weight: 74.25 kg

DRUGS (24)
  1. CITALOPRAM [Concomitant]
     Active Substance: CITALOPRAM HYDROBROMIDE
  2. VALERIAN ROOT [Concomitant]
     Active Substance: VALERIAN
  3. FISH OIL [Concomitant]
     Active Substance: FISH OIL
  4. CINNAMON. [Concomitant]
     Active Substance: CINNAMON
  5. NIFEDIPINE. [Concomitant]
     Active Substance: NIFEDIPINE
  6. ASPIRIN 81MG [Concomitant]
     Active Substance: ASPIRIN
  7. GLUCOSAMINE [Concomitant]
     Active Substance: GLUCOSAMINE
  8. MAGNESIUM [Concomitant]
     Active Substance: MAGNESIUM
  9. MELATONIN [Concomitant]
     Active Substance: MELATONIN
  10. MSM [Concomitant]
     Active Substance: DIMETHYL SULFONE
  11. GINGER ROOT [Concomitant]
     Active Substance: GINGER
  12. TART CHERRY EXTRACT [Concomitant]
  13. ZINC. [Concomitant]
     Active Substance: ZINC
  14. NABUMETONE. [Suspect]
     Active Substance: NABUMETONE
     Indication: ARTHRITIS
     Dosage: ?          QUANTITY:180 TABLET(S);?
     Route: 048
     Dates: start: 20200605, end: 20200624
  15. AMITRIPTYLINE [Concomitant]
     Active Substance: AMITRIPTYLINE
  16. CETIRIZINE [Concomitant]
     Active Substance: CETIRIZINE HYDROCHLORIDE
  17. TAGAMET [Concomitant]
     Active Substance: CIMETIDINE
  18. VITAMIN B12 [Concomitant]
     Active Substance: CYANOCOBALAMIN
  19. CHONDROITIN [Concomitant]
     Active Substance: CHONDROITIN
  20. CALCIUM [Concomitant]
     Active Substance: CALCIUM
  21. TURMERIC [Concomitant]
     Active Substance: HERBALS\TURMERIC
  22. RESVERATROL [Concomitant]
     Active Substance: DIETARY SUPPLEMENT\RESVERATROL
  23. CYCLOBENZAPRINE. [Concomitant]
     Active Substance: CYCLOBENZAPRINE
  24. TOPROL XL [Concomitant]
     Active Substance: METOPROLOL SUCCINATE

REACTIONS (3)
  - Therapeutic product effect incomplete [None]
  - Product substitution issue [None]
  - Arthralgia [None]

NARRATIVE: CASE EVENT DATE: 20200605
